FAERS Safety Report 18017842 (Version 1)
Quarter: 2020Q3

REPORT INFORMATION
  Report Type: Other
  Country: US (occurrence: US)
  Receive Date: 20200713
  Receipt Date: 20200713
  Transmission Date: 20201103
  Serious: Yes (Other)
  Sender: FDA-Public Use
  Company Number: US-ROCHE-2638760

PATIENT
  Sex: Female

DRUGS (14)
  1. CALCIUM CARBONATE. [Concomitant]
     Active Substance: CALCIUM CARBONATE
  2. OMEPRAZOLE. [Concomitant]
     Active Substance: OMEPRAZOLE
  3. SUMATRIPTAN. [Concomitant]
     Active Substance: SUMATRIPTAN
  4. CETIRIZINE [Concomitant]
     Active Substance: CETIRIZINE HYDROCHLORIDE
  5. XELODA [Suspect]
     Active Substance: CAPECITABINE
     Indication: OESTROGEN RECEPTOR ASSAY NEGATIVE
  6. XELODA [Suspect]
     Active Substance: CAPECITABINE
     Indication: NEOPLASM MALIGNANT
  7. DEXAMETHASONE. [Concomitant]
     Active Substance: DEXAMETHASONE
     Dates: start: 20200303
  8. DEXAMETHASONE. [Concomitant]
     Active Substance: DEXAMETHASONE
     Dates: start: 20200204
  9. XELODA [Suspect]
     Active Substance: CAPECITABINE
     Indication: BREAST CANCER FEMALE
     Dosage: TAKE 3 TABLETS BY MOUTH EVERY MORNING AND TAKE 3 TABLETS BY MOUTH EVERY EVENING (10?12 HOURS APART)
     Route: 048
  10. APIXABAN [Concomitant]
     Active Substance: APIXABAN
  11. PROMETHAZINE [Concomitant]
     Active Substance: PROMETHAZINE HYDROCHLORIDE
  12. MEMANTIN [Concomitant]
     Active Substance: MEMANTINE
  13. GABAPENTIN. [Concomitant]
     Active Substance: GABAPENTIN
  14. VIT D [Concomitant]
     Active Substance: VITAMIN D NOS
     Dosage: 1000 UNITS

REACTIONS (1)
  - Neoplasm malignant [Unknown]
